FAERS Safety Report 10601369 (Version 1)
Quarter: 2014Q4

REPORT INFORMATION
  Report Type: Spontaneous
  Country: US (occurrence: None)
  Receive Date: 20141120
  Receipt Date: 20141120
  Transmission Date: 20150529
  Serious: Yes (Hospitalization)
  Sender: FDA-Public Use
  Company Number: COR_00162_2014

PATIENT
  Age: 62 Year
  Sex: Female

DRUGS (2)
  1. CARBOPLATIN. [Suspect]
     Active Substance: CARBOPLATIN
     Indication: OVARIAN CLEAR CELL CARCINOMA
     Dosage: 6 CYCLES
  2. PACLITAXEL. [Suspect]
     Active Substance: PACLITAXEL
     Indication: OVARIAN CLEAR CELL CARCINOMA
     Dosage: 6 CYCLES

REACTIONS (11)
  - Cardiac valve vegetation [None]
  - Hypercoagulation [None]
  - Embolic cerebral infarction [None]
  - Deep vein thrombosis [None]
  - Hemianopia homonymous [None]
  - Renal infarct [None]
  - Neuropathy peripheral [None]
  - Metastases to spine [None]
  - Metastases to liver [None]
  - Pulmonary embolism [None]
  - Metastasis [None]
